FAERS Safety Report 5357065-2 (Version None)
Quarter: 2007Q2

REPORT INFORMATION
  Report Type: 
  Country: None (occurrence: None)
  Receive Date: 20070614
  Receipt Date: 20070607
  Transmission Date: 20071010
  Serious: Yes (Hospitalization, Disabling)
  Sender: FDA-Public Use
  Company Number: US-ASTRAZENECA-2005UW02449

PATIENT
  Age: 68 Year
  Sex: Male
  Weight: 91.8 kg

DRUGS (3)
  1. CRESTOR [Suspect]
     Indication: BLOOD CHOLESTEROL INCREASED
     Route: 048
     Dates: start: 20031111, end: 20040930
  2. VERAPAMIL [Concomitant]
  3. CIALIS [Concomitant]

REACTIONS (27)
  - AMYOTROPHIC LATERAL SCLEROSIS [None]
  - ANAEMIA [None]
  - ANXIETY [None]
  - BRONCHITIS CHRONIC [None]
  - CACHEXIA [None]
  - CERVICAL MYELOPATHY [None]
  - DENERVATION ATROPHY [None]
  - DRUG INEFFECTIVE [None]
  - FEELING COLD [None]
  - HEPATIC ATROPHY [None]
  - IMPAIRED SELF-CARE [None]
  - INFLAMMATION [None]
  - INSOMNIA [None]
  - LYMPHADENOPATHY [None]
  - MUSCLE ATROPHY [None]
  - MUSCLE MASS [None]
  - MYOPATHY [None]
  - MYOSITIS [None]
  - PAIN [None]
  - PAIN IN EXTREMITY [None]
  - PARANEOPLASTIC SYNDROME [None]
  - POLYMYALGIA RHEUMATICA [None]
  - QUADRIPLEGIA [None]
  - RESPIRATORY DISORDER [None]
  - SPINAL COLUMN STENOSIS [None]
  - SPINAL OSTEOARTHRITIS [None]
  - TENSION [None]
